FAERS Safety Report 10565202 (Version 1)
Quarter: 2014Q4

REPORT INFORMATION
  Report Type: Spontaneous
  Country: JP (occurrence: None)
  Receive Date: 20141103
  Receipt Date: 20141103
  Transmission Date: 20150529
  Serious: Yes (Other)
  Sender: FDA-Public Use
  Company Number: JP-017516

PATIENT
  Sex: Male

DRUGS (1)
  1. DEGARELIX ACETATE (GONAX) [Suspect]
     Active Substance: DEGARELIX ACETATE
     Indication: PROSTATE CANCER
     Dates: start: 201401, end: 2014

REACTIONS (2)
  - Blood glucose increased [None]
  - Blood pressure fluctuation [None]

NARRATIVE: CASE EVENT DATE: 2014
